FAERS Safety Report 9170235 (Version 1)
Quarter: 2013Q1

REPORT INFORMATION
  Report Type: Spontaneous
  Country: US (occurrence: None)
  Receive Date: 20130315
  Receipt Date: 20130315
  Transmission Date: 20140127
  Serious: Yes (Life-Threatening, Hospitalization)
  Sender: FDA-Public Use
  Company Number: None

PATIENT
  Age: 79 Year
  Sex: Female
  Weight: 87.6 kg

DRUGS (1)
  1. XARELTO 10MG JANSSEN [Suspect]
     Route: 048
     Dates: start: 20130219, end: 20130222

REACTIONS (1)
  - Pulmonary embolism [None]
